FAERS Safety Report 16209349 (Version 1)
Quarter: 2019Q2

REPORT INFORMATION
  Report Type: Spontaneous
  Country: CA (occurrence: CA)
  Receive Date: 20190417
  Receipt Date: 20190417
  Transmission Date: 20190711
  Serious: Yes (Death)
  Sender: FDA-Public Use
  Company Number: CA-NAPPMUNDI-CAN-2019-0009931

PATIENT
  Age: 77 Year
  Sex: Male

DRUGS (1)
  1. HYDROMORPH CONTIN [Suspect]
     Active Substance: HYDROMORPHONE
     Indication: PRODUCT USED FOR UNKNOWN INDICATION
     Dosage: 30 MG, ONCE
     Route: 065

REACTIONS (6)
  - Pain [Fatal]
  - Altered state of consciousness [Fatal]
  - Pneumonia aspiration [Fatal]
  - Product dispensing error [Fatal]
  - Wrong product administered [Fatal]
  - Overdose [Fatal]
